FAERS Safety Report 4863950-8 (Version None)
Quarter: 2005Q4

REPORT INFORMATION
  Report Type: 
  Country: None (occurrence: None)
  Receive Date: 20051219
  Receipt Date: 20051219
  Transmission Date: 20060501
  Serious: Yes (Other)
  Sender: FDA-Public Use
  Company Number: None

PATIENT
  Age: 65 Year
  Sex: Male
  Weight: 63.5036 kg

DRUGS (1)
  1. CIPRO [Suspect]
     Indication: INFECTION PROPHYLAXIS
     Dosage: 500 MG TWICE DAILY ORAL
     Route: 048
     Dates: start: 20051110, end: 20051115

REACTIONS (9)
  - BLOOD URINE [None]
  - DRUG INTOLERANCE [None]
  - ERYTHEMA [None]
  - HAEMORRHAGE [None]
  - PENILE EXFOLIATION [None]
  - PRURITUS [None]
  - SCROTAL DISORDER [None]
  - SKIN EXFOLIATION [None]
  - TESTICULAR SWELLING [None]
